FAERS Safety Report 8135443-6 (Version None)
Quarter: 2012Q1

REPORT INFORMATION
  Report Type: 
  Country: None (occurrence: None)
  Receive Date: 20120214
  Receipt Date: 20120213
  Transmission Date: 20120608
  Serious: Yes (Other)
  Sender: FDA-Public Use
  Company Number: FR-JNJFOC-20120205144

PATIENT
  Sex: Male

DRUGS (8)
  1. METOCLOPRAMIDE [Concomitant]
     Indication: FOETAL EXPOSURE DURING PREGNANCY
     Route: 064
  2. IFOSFAMIDE [Suspect]
     Indication: FOETAL EXPOSURE DURING PREGNANCY
     Dosage: CYCLE 1
     Route: 064
  3. IFOSFAMIDE [Suspect]
     Dosage: CYCLE 2
     Route: 064
  4. DOXORUBICIN HCL [Suspect]
     Route: 064
  5. DOXORUBICIN HCL [Suspect]
     Route: 064
  6. ONDANSETRON [Concomitant]
     Indication: FOETAL EXPOSURE DURING PREGNANCY
     Route: 064
  7. DOXORUBICIN HCL [Suspect]
     Indication: FOETAL EXPOSURE DURING PREGNANCY
     Dosage: CYCLE 2
     Route: 064
  8. DOXORUBICIN HCL [Suspect]
     Dosage: CYCLE 1
     Route: 064

REACTIONS (1)
  - PREMATURE BABY [None]
